FAERS Safety Report 4360916-1 (Version None)
Quarter: 2004Q2

REPORT INFORMATION
  Report Type: 
  Country: None (occurrence: None)
  Receive Date: 20040517
  Receipt Date: 20040430
  Transmission Date: 20050107
  Serious: Yes (Life-Threatening, Hospitalization)
  Sender: FDA-Public Use
  Company Number: 2003-DE-05749SI

PATIENT
  Age: 37 Year
  Sex: Female

DRUGS (4)
  1. VIRAMUNE [Suspect]
     Indication: HIV INFECTION
     Dosage: 200 MG (200 MG); PO
     Route: 048
     Dates: start: 20030923, end: 20031005
  2. COMBIVIR [Concomitant]
  3. STOCRIN (KAP) [Concomitant]
  4. DEPO-PROVERA (MEDROXYPROGESTERONE ACETATE) (AMM) [Concomitant]

REACTIONS (15)
  - ALOPECIA [None]
  - BACTERIAL INFECTION [None]
  - CONJUNCTIVITIS [None]
  - DEPRESSION [None]
  - KELOID SCAR [None]
  - LUNG DISORDER [None]
  - MOBILITY DECREASED [None]
  - ONYCHOLYSIS [None]
  - PSEUDOMONAS INFECTION [None]
  - RESPIRATORY FAILURE [None]
  - RHABDOMYOLYSIS [None]
  - SUPERINFECTION [None]
  - THROMBOSIS [None]
  - TOXIC EPIDERMAL NECROLYSIS [None]
  - WEIGHT DECREASED [None]
